FAERS Safety Report 26047053 (Version 1)
Quarter: 2025Q4

REPORT INFORMATION
  Report Type: Spontaneous
  Country: US (occurrence: None)
  Receive Date: 20251114
  Receipt Date: 20251114
  Transmission Date: 20260117
  Serious: Yes (Disabling, Other)
  Sender: FDA-CTU
  Company Number: None

PATIENT
  Age: 0 Year
  Sex: Male
  Weight: 56.25 kg

DRUGS (4)
  1. BUPRENORPHINE\NALOXONE [Suspect]
     Active Substance: BUPRENORPHINE\NALOXONE
  2. SUBOXONE [Concomitant]
     Active Substance: BUPRENORPHINE HYDROCHLORIDE\NALOXONE HYDROCHLORIDE
  3. NALOXONE [Concomitant]
     Active Substance: NALOXONE
  4. OXYCODONE [Suspect]
     Active Substance: OXYCODONE

REACTIONS (4)
  - Tooth fracture [None]
  - Tooth loss [None]
  - Gingival disorder [None]
  - Quality of life decreased [None]

NARRATIVE: CASE EVENT DATE: 19870130
